FAERS Safety Report 9256940 (Version 1)
Quarter: 2013Q2

REPORT INFORMATION
  Report Type: Spontaneous
  Country: CA (occurrence: CA)
  Receive Date: 20130426
  Receipt Date: 20130426
  Transmission Date: 20140414
  Serious: Yes (Disabling, Other)
  Sender: FDA-Public Use
  Company Number: CA-ACCORD-017300

PATIENT
  Age: 54 Year
  Sex: Male

DRUGS (3)
  1. SIROLIMUS [Concomitant]
     Indication: IMMUNOSUPPRESSION
  2. TACROLIMUS [Suspect]
     Indication: IMMUNOSUPPRESSION
  3. MYCOPHENOLATE MOFETIL [Suspect]
     Indication: IMMUNOSUPPRESSION

REACTIONS (13)
  - Locked-in syndrome [Recovering/Resolving]
  - Pancytopenia [Unknown]
  - Intra-abdominal haemorrhage [None]
  - Post procedural complication [None]
  - Hyponatraemia [None]
  - Increased bronchial secretion [None]
  - Somnolence [None]
  - Respiratory tract infection [None]
  - Staphylococcal infection [None]
  - Pneumonia aspiration [None]
  - Activities of daily living impaired [None]
  - Cognitive disorder [None]
  - Abnormal behaviour [None]
